FAERS Safety Report 4964492-1 (Version None)
Quarter: 2006Q1

REPORT INFORMATION
  Report Type: 
  Country: None (occurrence: None)
  Receive Date: 20060331
  Receipt Date: 20060314
  Transmission Date: 20060701
  Serious: Yes (Life-Threatening, Hospitalization)
  Sender: FDA-Public Use
  Company Number: 219645

PATIENT
  Age: 59 Year
  Sex: Female

DRUGS (4)
  1. MABTHERA [Suspect]
     Dosage: 375 MG/M2, INTRAVENOUS
     Route: 042
     Dates: start: 20050601, end: 20050801
  2. CYCLOPHOSPHAMIDE [Concomitant]
  3. VINCRISTINE SULFATE [Concomitant]
  4. PREDNISONE TAB [Concomitant]

REACTIONS (2)
  - CYTOMEGALOVIRUS ENTERITIS [None]
  - ILEITIS [None]
